FAERS Safety Report 4692455-2 (Version None)
Quarter: 2005Q2

REPORT INFORMATION
  Report Type: 
  Country: None (occurrence: None)
  Receive Date: 20050613
  Receipt Date: 20050321
  Transmission Date: 20051028
  Serious: Yes (Hospitalization, Other)
  Sender: FDA-Public Use
  Company Number: 2005-00610

PATIENT
  Age: 76 Year
  Sex: Male
  Weight: 56.7 kg

DRUGS (7)
  1. VELCADE [Suspect]
     Indication: MULTIPLE MYELOMA
     Dosage: 2.50 MG, INTRAVENOUS
     Route: 042
     Dates: start: 20041111, end: 20050127
  2. MULTIVITAMINS (ERGOCALCIFEROL, ASCORBIC ACID, PANTHENOL, NICOTINAMIDE, [Concomitant]
  3. PROSCAR [Concomitant]
  4. NEURONTIN [Concomitant]
  5. FOLIC ACID [Concomitant]
  6. MECLIZINE [Concomitant]
  7. FLORINEF [Concomitant]

REACTIONS (12)
  - DEHYDRATION [None]
  - DIARRHOEA [None]
  - DIZZINESS [None]
  - FAECAL INCONTINENCE [None]
  - GASTRITIS [None]
  - GASTROINTESTINAL HAEMORRHAGE [None]
  - LOSS OF CONSCIOUSNESS [None]
  - ORTHOSTATIC HYPOTENSION [None]
  - PARAESTHESIA [None]
  - SNORING [None]
  - SYNCOPE [None]
  - VOLUME BLOOD DECREASED [None]
